FAERS Safety Report 5937128-0 (Version None)
Quarter: 2008Q4

REPORT INFORMATION
  Report Type: 
  Country: None (occurrence: None)
  Receive Date: 20081031
  Receipt Date: 20081028
  Transmission Date: 20090506
  Serious: Yes (Death, Hospitalization, Other)
  Sender: FDA-Public Use
  Company Number: PHHY2008BR26191

PATIENT
  Age: 84 Year
  Sex: Male
  Weight: 60 kg

DRUGS (4)
  1. EXELON [Suspect]
     Indication: DEMENTIA
     Dosage: 9MG/5CM2, 1 PATCH DAILY
     Route: 062
     Dates: start: 20081003
  2. LORAX [Concomitant]
     Indication: SLEEP DISORDER
     Dosage: 0.5 DF, BID
     Route: 048
  3. CAPTOPRIL [Concomitant]
     Indication: HYPERTENSION
     Dosage: 2 TABLETS DAILY
     Route: 048
  4. BEROTEC [Concomitant]
     Indication: EMPHYSEMA
     Dosage: 2 INHALATIONS DAILY

REACTIONS (6)
  - BRONCHOPNEUMONIA [None]
  - CHRONIC OBSTRUCTIVE PULMONARY DISEASE [None]
  - CONDITION AGGRAVATED [None]
  - INFARCTION [None]
  - INFECTION [None]
  - PARKINSON'S DISEASE [None]
